FAERS Safety Report 8586865-0 (Version None)
Quarter: 2012Q3

REPORT INFORMATION
  Report Type: 
  Country: None (occurrence: None)
  Receive Date: 20120810
  Receipt Date: 20120516
  Transmission Date: 20120928
  Serious: Yes (Other)
  Sender: FDA-Public Use
  Company Number: CHPA2012US017345

PATIENT

DRUGS (1)
  1. EX-LAX UNKNOWN [Suspect]
     Indication: WEIGHT CONTROL
     Dosage: ABOUT 8 A DAY
     Route: 048

REACTIONS (2)
  - OVERDOSE [None]
  - INTENTIONAL DRUG MISUSE [None]
